FAERS Safety Report 20487930 (Version 1)
Quarter: 2022Q1

REPORT INFORMATION
  Report Type: Spontaneous
  Country: US (occurrence: US)
  Receive Date: 20220218
  Receipt Date: 20220218
  Transmission Date: 20220423
  Serious: No
  Sender: FDA-Public Use
  Company Number: US-ORGANON-O2202USA001327

PATIENT
  Age: 21 Year
  Sex: Female

DRUGS (1)
  1. NEXPLANON [Suspect]
     Active Substance: ETONOGESTREL
     Indication: Contraception
     Dosage: UNK
     Route: 059
     Dates: start: 20220214

REACTIONS (4)
  - Implant site pain [Not Recovered/Not Resolved]
  - Pain [Not Recovered/Not Resolved]
  - Implant site bruising [Unknown]
  - Device placement issue [Not Recovered/Not Resolved]

NARRATIVE: CASE EVENT DATE: 20220214
